FAERS Safety Report 8120061-6 (Version None)
Quarter: 2012Q1

REPORT INFORMATION
  Report Type: 
  Country: None (occurrence: None)
  Receive Date: 20120207
  Receipt Date: 20120127
  Transmission Date: 20120608
  Serious: Yes (Hospitalization)
  Sender: FDA-Public Use
  Company Number: MX-BAXTER-2012BH003302

PATIENT
  Age: 45 Year
  Sex: Male

DRUGS (13)
  1. EXTRANEAL [Suspect]
     Route: 033
  2. DIANEAL [Suspect]
     Indication: PERITONEAL DIALYSIS
     Route: 033
     Dates: end: 20120113
  3. DIANEAL [Suspect]
     Route: 033
     Dates: end: 20120113
  4. DIANEAL [Suspect]
     Route: 033
     Dates: start: 20120114, end: 20120121
  5. DIANEAL [Suspect]
     Route: 033
     Dates: start: 20120122
  6. EXTRANEAL [Suspect]
     Route: 033
  7. NIFEDIPINE [Concomitant]
     Indication: HYPERTENSION
     Route: 048
  8. LOSARTAN POTASSIUM [Concomitant]
     Indication: HYPERTENSION
     Route: 048
  9. EXTRANEAL [Suspect]
     Route: 033
  10. DIANEAL [Suspect]
     Route: 033
     Dates: start: 20120114, end: 20120121
  11. DIANEAL [Suspect]
     Route: 033
     Dates: start: 20120122
  12. EXTRANEAL [Suspect]
     Indication: PERITONEAL DIALYSIS
     Route: 033
  13. CAPTOPRIL [Concomitant]
     Indication: HYPERTENSION
     Route: 048

REACTIONS (4)
  - HEADACHE [None]
  - HYPERGLYCAEMIA [None]
  - FATIGUE [None]
  - DIABETIC COMA [None]
